FAERS Safety Report 10486157 (Version 2)
Quarter: 2014Q4

REPORT INFORMATION
  Report Type: Spontaneous
  Country: US (occurrence: None)
  Receive Date: 20140929
  Receipt Date: 20141105
  Transmission Date: 20150528
  Serious: Yes (Other)
  Sender: FDA-Public Use
  Company Number: 2014-US-011115

PATIENT
  Age: 55 Year
  Sex: Male
  Weight: 79.4 kg

DRUGS (6)
  1. DEXTROAMPHETAMINE ER (DEXAMPHETAMINE) [Concomitant]
  2. DEXTROAMPHETAMINE [Concomitant]
     Active Substance: DEXTROAMPHETAMINE
  3. XYREM [Suspect]
     Active Substance: SODIUM OXYBATE
     Indication: NARCOLEPSY
     Dates: start: 201408, end: 201408
  4. XYREM [Suspect]
     Active Substance: SODIUM OXYBATE
     Indication: SOMNOLENCE
     Dates: start: 201408, end: 201408
  5. TESTOSTERONE. [Concomitant]
     Active Substance: TESTOSTERONE
  6. MIRAPEX [Concomitant]
     Active Substance: PRAMIPEXOLE DIHYDROCHLORIDE

REACTIONS (3)
  - Anhedonia [None]
  - Enuresis [None]
  - Tinnitus [None]

NARRATIVE: CASE EVENT DATE: 201408
